FAERS Safety Report 9211596 (Version 2)
Quarter: 2013Q4

REPORT INFORMATION
  Report Type: Spontaneous
  Country: US (occurrence: US)
  Receive Date: 20130404
  Receipt Date: 20131106
  Transmission Date: 20140711
  Serious: No
  Sender: FDA-Public Use
  Company Number: US-AMGEN-USASP2013017176

PATIENT
  Age: 42 Year
  Sex: Female
  Weight: 77.1 kg

DRUGS (2)
  1. ENBREL [Suspect]
     Indication: RHEUMATOID ARTHRITIS
     Dosage: 50 MG, QWK
     Route: 058
     Dates: start: 20080501, end: 20120311
  2. LEFLUNOMIDE [Concomitant]
     Dosage: 2 G, QD
     Route: 048

REACTIONS (1)
  - Urticaria [Recovering/Resolving]
